FAERS Safety Report 7991799-6 (Version None)
Quarter: 2011Q4

REPORT INFORMATION
  Report Type: 
  Country: None (occurrence: None)
  Receive Date: 20111219
  Receipt Date: 20111212
  Transmission Date: 20120403
  Serious: Yes (Other)
  Sender: FDA-Public Use
  Company Number: ES-B.I. PHARMACEUTICALS,INC./RIDGEFIELD-2011-ES-00285ES

PATIENT
  Age: 66 Year
  Sex: Male

DRUGS (7)
  1. ACREL [Concomitant]
  2. PREDNISONE [Concomitant]
  3. HIBOR [Concomitant]
  4. PRIMPERAN TAB [Concomitant]
  5. ASPIRIN [Concomitant]
  6. GELOCATIL CODEINA [Concomitant]
  7. PRADAXA [Suspect]
     Indication: KNEE ARTHROPLASTY
     Dosage: 220 MG
     Route: 048
     Dates: start: 20110718, end: 20110728

REACTIONS (3)
  - TRANSAMINASES INCREASED [None]
  - DIARRHOEA [None]
  - HYPOTENSION [None]
